FAERS Safety Report 5445857-0 (Version None)
Quarter: 2007Q3

REPORT INFORMATION
  Report Type: 
  Country: None (occurrence: None)
  Receive Date: 20070904
  Receipt Date: 20070821
  Transmission Date: 20080115
  Serious: Yes (Congenital Anomaly, Other)
  Sender: FDA-Public Use
  Company Number: 390008N07JPN

PATIENT
  Sex: Male

DRUGS (5)
  1. CETRORELIX ACETATE (CETRORELIX ACETATE) [Suspect]
     Dosage: 3 MG, ONCE, TRANSPLACENTAL
     Route: 064
     Dates: start: 20060807, end: 20060807
  2. FERTINORM P (MENOTROPHIN) [Suspect]
     Dosage: 300 IU, TRANSPLACENTAL, 150 IU, TRANSPLACENTAL
     Route: 064
     Dates: start: 20060802, end: 20060806
  3. FERTINORM P (MENOTROPHIN) [Suspect]
     Dosage: 300 IU, TRANSPLACENTAL, 150 IU, TRANSPLACENTAL
     Route: 064
     Dates: start: 20060807, end: 20060809
  4. PERGOGREEN (MENOTROPHIN) [Suspect]
     Dosage: 150 IU, TRANSPLACENTAL
     Route: 064
     Dates: start: 20060807, end: 20060809
  5. CHORIONIC GONADTROPIN [Suspect]
     Dosage: 10000 IU, ONCE, TRANSPLACENTAL
     Route: 064
     Dates: start: 20060810, end: 20060810

REACTIONS (3)
  - CONGENITAL CYSTIC KIDNEY DISEASE [None]
  - DRUG EXPOSURE DURING PREGNANCY [None]
  - POLYDACTYLY [None]
